FAERS Safety Report 5541889-2 (Version None)
Quarter: 2007Q4

REPORT INFORMATION
  Report Type: 
  Country: None (occurrence: None)
  Receive Date: 20071205
  Receipt Date: 20071129
  Transmission Date: 20080405
  Serious: Yes (Hospitalization)
  Sender: FDA-Public Use
  Company Number: GXKR2007DE10183

PATIENT
  Sex: Male

DRUGS (3)
  1. CEFUROXIME [Suspect]
     Indication: SINUSITIS
     Dosage: ORAL
     Route: 048
  2. COTRIMHEXAL FORTE (NGX)(SULFAMETHOXAZOLE, TRIMETHROPRIM) TABLET [Suspect]
     Indication: SINUSITIS
     Dosage: ORAL
     Route: 048
  3. CLINDAMYCIN HYDROCHLORIDE [Suspect]
     Indication: SINUSITIS
     Dosage: ORAL
     Route: 048

REACTIONS (3)
  - ANXIETY [None]
  - HYPERTENSION [None]
  - THERAPEUTIC AGENT TOXICITY [None]
